FAERS Safety Report 10640913 (Version 2)
Quarter: 2016Q4

REPORT INFORMATION
  Report Type: Report from Study
  Country: IN (occurrence: IN)
  Receive Date: 20141209
  Receipt Date: 20161108
  Transmission Date: 20170206
  Serious: Yes (Death, Other)
  Sender: FDA-Public Use
  Company Number: IN-BAXTER-2014BAX071769

PATIENT
  Sex: Female

DRUGS (4)
  1. SUXAMETHONIUM [Suspect]
     Active Substance: SUCCINYLCHOLINE
     Indication: ENDOTRACHEAL INTUBATION
     Dosage: 1 TO 2 MG/KG
     Route: 042
  2. MAGNESIUM SULFATE. [Suspect]
     Active Substance: MAGNESIUM SULFATE
     Indication: CONVULSION PROPHYLAXIS
     Route: 065
  3. ISOFLURANE USP (AERRANE) 100ML, 250ML GLASS BOTTLES - INHALATION ANAES [Suspect]
     Active Substance: ISOFLURANE
     Indication: MAINTENANCE OF ANAESTHESIA
     Dosage: 0.3 TO 1.5 MAC AS REQUIRED
     Route: 065
  4. PROPOFOL. [Suspect]
     Active Substance: PROPOFOL
     Indication: ANAESTHESIA PROCEDURE
     Dosage: 1.5 TO 2.5 MG/KG
     Route: 065

REACTIONS (2)
  - Acute kidney injury [Fatal]
  - Exposure during pregnancy [Recovered/Resolved]
